FAERS Safety Report 6155467-8 (Version None)
Quarter: 2009Q2

REPORT INFORMATION
  Report Type: 
  Country: None (occurrence: None)
  Receive Date: 20090415
  Receipt Date: 20090415
  Transmission Date: 20091009
  Serious: Yes (Hospitalization)
  Sender: FDA-Public Use
  Company Number: PHHO2004FR05039

PATIENT
  Sex: Female
  Weight: 52 kg

DRUGS (4)
  1. CGS 20267 T30748+ [Suspect]
     Indication: BREAST CANCER
     Dosage: 2.5 MG, QD
     Route: 048
  2. TAMOXIFEN CITRATE [Suspect]
     Dosage: 20 MG, QD-2 YEARS
     Dates: start: 20010217
  3. LOGIMAX [Concomitant]
     Indication: HYPERTENSION
  4. SPIRONOLACTONE [Concomitant]

REACTIONS (5)
  - ANGIOPLASTY [None]
  - CARDIOVERSION [None]
  - CORONARY ARTERY THROMBOSIS [None]
  - MYOCARDIAL INFARCTION [None]
  - VENTRICULAR FIBRILLATION [None]
